FAERS Safety Report 6610118-0 (Version None)
Quarter: 2010Q1

REPORT INFORMATION
  Report Type: 
  Country: None (occurrence: None)
  Receive Date: 20100216
  Receipt Date: 20090313
  Transmission Date: 20100710
  Serious: Yes (Other)
  Sender: FDA-Public Use
  Company Number: MC200900084

PATIENT
  Age: 87 Year
  Sex: Female

DRUGS (4)
  1. ANGIOMAX [Suspect]
     Indication: PERCUTANEOUS CORONARY INTERVENTION
     Dosage: 12.8 ML, BOLUS, INTRAVENOUS : 17 ML, HR, INTRAVENOUS
     Route: 042
     Dates: start: 20090304, end: 20090304
  2. ANGIOMAX [Suspect]
     Indication: PERCUTANEOUS CORONARY INTERVENTION
     Dosage: 12.8 ML, BOLUS, INTRAVENOUS : 17 ML, HR, INTRAVENOUS
     Route: 042
     Dates: start: 20090304, end: 20090304
  3. PLAVIX [Concomitant]
  4. LOVENOX [Concomitant]

REACTIONS (1)
  - PUNCTURE SITE HAEMORRHAGE [None]
